FAERS Safety Report 25365509 (Version 1)
Quarter: 2025Q2

REPORT INFORMATION
  Report Type: Spontaneous
  Country: US (occurrence: US)
  Receive Date: 20250527
  Receipt Date: 20250527
  Transmission Date: 20250717
  Serious: No
  Sender: CIPLA
  Company Number: US-CIPLA LTD.-2024US08846

PATIENT

DRUGS (3)
  1. ALBUTEROL [Suspect]
     Active Substance: ALBUTEROL
     Indication: COVID-19
     Dates: end: 2024
  2. ALBUTEROL [Suspect]
     Active Substance: ALBUTEROL
     Indication: Pneumonia
  3. ALBUTEROL [Suspect]
     Active Substance: ALBUTEROL
     Indication: Asthma

REACTIONS (6)
  - Adverse event [Unknown]
  - Condition aggravated [Unknown]
  - Illness [Unknown]
  - Off label use [Unknown]
  - Device delivery system issue [Unknown]
  - Device malfunction [Unknown]
